FAERS Safety Report 10205278 (Version 1)
Quarter: 2014Q2

REPORT INFORMATION
  Report Type: Report from Study
  Country: US (occurrence: US)
  Receive Date: 20140529
  Receipt Date: 20140529
  Transmission Date: 20141212
  Serious: No
  Sender: FDA-Public Use
  Company Number: US-SA-2014SA035635

PATIENT
  Age: 34 Year
  Sex: Male

DRUGS (4)
  1. LANTUS SOLOSTAR [Suspect]
     Indication: TYPE 2 DIABETES MELLITUS
     Dosage: DOSE:56 UNIT(S)
     Route: 065
  2. SOLOSTAR [Concomitant]
     Indication: DEVICE THERAPY
  3. VITAMIN B12 [Concomitant]
  4. MULTIVITAMINS [Concomitant]

REACTIONS (2)
  - Blood glucose increased [Unknown]
  - Inappropriate schedule of drug administration [Unknown]
